FAERS Safety Report 16839570 (Version 4)
Quarter: 2019Q4

REPORT INFORMATION
  Report Type: Spontaneous
  Country: US (occurrence: US)
  Receive Date: 20190923
  Receipt Date: 20191023
  Transmission Date: 20200122
  Serious: No
  Sender: FDA-Public Use
  Company Number: US-PFIZER INC-2019405951

PATIENT
  Age: 73 Year
  Sex: Male
  Weight: 68.4 kg

DRUGS (1)
  1. SERTRALINE HCL [Suspect]
     Active Substance: SERTRALINE HYDROCHLORIDE
     Indication: NEUROPATHY PERIPHERAL
     Dosage: 50 MG, 1X/DAY
     Dates: start: 2019, end: 201909

REACTIONS (7)
  - Eye pain [Unknown]
  - Product use in unapproved indication [Unknown]
  - Visual field defect [Not Recovered/Not Resolved]
  - Dry mouth [Unknown]
  - Migraine with aura [Not Recovered/Not Resolved]
  - Off label use [Unknown]
  - Visual impairment [Unknown]

NARRATIVE: CASE EVENT DATE: 2019
